FAERS Safety Report 6380587-2 (Version None)
Quarter: 2009Q3

REPORT INFORMATION
  Report Type: 
  Country: None (occurrence: None)
  Receive Date: 20090929
  Receipt Date: 20090818
  Transmission Date: 20100115
  Serious: No
  Sender: FDA-Public Use
  Company Number: US-BAYER-200931053NA

PATIENT
  Age: 35 Year
  Sex: Female
  Weight: 84 kg

DRUGS (6)
  1. MIRENA [Suspect]
     Indication: DRUG USE FOR UNKNOWN INDICATION
     Route: 015
     Dates: start: 20090817, end: 20090819
  2. CYMBALTA [Concomitant]
  3. LEVOTHRODINE [Concomitant]
  4. CLONIDINE [Concomitant]
  5. DOXEPIN HCL [Concomitant]
  6. LORAZEPAM [Concomitant]

REACTIONS (4)
  - CRYING [None]
  - DYSMENORRHOEA [None]
  - MENORRHAGIA [None]
  - MOOD SWINGS [None]
